FAERS Safety Report 5315042-1 (Version None)
Quarter: 2007Q2

REPORT INFORMATION
  Report Type: 
  Country: None (occurrence: None)
  Receive Date: 20070502
  Receipt Date: 20070418
  Transmission Date: 20071010
  Serious: Yes (Hospitalization)
  Sender: FDA-Public Use
  Company Number: JP-ROCHE-492596

PATIENT
  Age: 54 Year
  Sex: Male

DRUGS (3)
  1. TAMIFLU [Suspect]
     Route: 048
     Dates: start: 20070330, end: 20070330
  2. TAMIFLU [Suspect]
     Route: 048
     Dates: start: 20070331, end: 20070331
  3. CALONAL [Concomitant]
     Route: 048
     Dates: start: 20070330

REACTIONS (1)
  - ERYTHEMA NODOSUM [None]
